FAERS Safety Report 10747949 (Version 2)
Quarter: 2015Q1

REPORT INFORMATION
  Report Type: Report from Study
  Country: CA (occurrence: CA)
  Receive Date: 20150129
  Receipt Date: 20150219
  Transmission Date: 20150721
  Serious: Yes (Hospitalization, Other)
  Sender: FDA-Public Use
  Company Number: CA-JNJFOC-20141215820

PATIENT
  Age: 55 Year
  Sex: Female
  Weight: 86 kg

DRUGS (13)
  1. REMICADE [Suspect]
     Active Substance: INFLIXIMAB
     Indication: COLITIS ULCERATIVE
     Dosage: INFUSION 16
     Route: 042
     Dates: start: 20150212
  2. REMICADE [Suspect]
     Active Substance: INFLIXIMAB
     Indication: COLITIS ULCERATIVE
     Route: 042
     Dates: start: 20141027
  3. REMICADE [Suspect]
     Active Substance: INFLIXIMAB
     Indication: COLITIS ULCERATIVE
     Route: 042
     Dates: start: 2012
  4. ACTONEL [Concomitant]
     Active Substance: RISEDRONATE SODIUM
     Route: 065
  5. ZOVIRAX [Concomitant]
     Active Substance: ACYCLOVIR
     Route: 065
  6. ASA [Concomitant]
     Active Substance: ASPIRIN
     Route: 065
  7. CELEBREX [Concomitant]
     Active Substance: CELECOXIB
     Route: 065
  8. ACARBOSE. [Concomitant]
     Active Substance: ACARBOSE
     Route: 065
  9. ELOCON [Concomitant]
     Active Substance: MOMETASONE FUROATE
     Dosage: WHEN NECESSARY
     Route: 065
  10. PROTOPIC [Concomitant]
     Active Substance: TACROLIMUS
     Dosage: WHEN NECESSARY
     Route: 065
  11. IMURAN [Concomitant]
     Active Substance: AZATHIOPRINE
     Route: 065
  12. ZOVIRAX [Concomitant]
     Active Substance: ACYCLOVIR
     Route: 065
  13. ACCUTANE [Concomitant]
     Active Substance: ISOTRETINOIN
     Route: 065

REACTIONS (3)
  - Back pain [Not Recovered/Not Resolved]
  - Nephrolithiasis [Unknown]
  - Cystitis [Not Recovered/Not Resolved]

NARRATIVE: CASE EVENT DATE: 20141127
